FAERS Safety Report 9548666 (Version 1)
Quarter: 2013Q2

REPORT INFORMATION
  Report Type: Spontaneous
  Country: US (occurrence: None)
  Receive Date: 20130524
  Receipt Date: 20130524
  Transmission Date: 20140414
  Serious: No
  Sender: FDA-Public Use
  Company Number: PHEH2013US000837

PATIENT
  Age: 45 Year
  Sex: Female

DRUGS (2)
  1. GILENYA (FINGOLIMOD) CAPSULE [Suspect]
     Indication: MULTIPLE SCLEROSIS
     Route: 048
     Dates: start: 20121218
  2. NEXIUM 1-2-3 (AMOXICILLIN TRINIDRATE, CLARITHROMYCIN, ESOMEPRAZOLE MAGNESIUM) [Concomitant]

REACTIONS (3)
  - Eructation [None]
  - Chest discomfort [None]
  - Concomitant disease aggravated [None]
